FAERS Safety Report 10856251 (Version 1)
Quarter: 2015Q1

REPORT INFORMATION
  Report Type: Other
  Country: FR (occurrence: FR)
  Receive Date: 20150223
  Receipt Date: 20150223
  Transmission Date: 20150721
  Serious: Yes (Life-Threatening, Hospitalization)
  Sender: FDA-Public Use
  Company Number: FR-MYLANLABS-2014M1013592

PATIENT

DRUGS (10)
  1. PIPERACILLINE TAZOBACTAM 4 G/500 MG [Suspect]
     Active Substance: PIPERACILLIN SODIUM\TAZOBACTAM SODIUM
     Indication: PRODUCT USED FOR UNKNOWN INDICATION
     Dosage: UNK
     Route: 042
     Dates: start: 201407
  2. PARACETAMOL [Concomitant]
     Active Substance: ACETAMINOPHEN
     Indication: PRODUCT USED FOR UNKNOWN INDICATION
     Dosage: UNK
  3. SOLUPRED                           /00016201/ [Concomitant]
     Active Substance: PREDNISOLONE
     Indication: PRODUCT USED FOR UNKNOWN INDICATION
     Dosage: UNK
  4. PIPERACILLINE TAZOBACTAM 4 G/500 MG [Suspect]
     Active Substance: PIPERACILLIN SODIUM\TAZOBACTAM SODIUM
     Dosage: UNK
     Route: 042
     Dates: start: 20140804, end: 20140819
  5. AMIKACINE MYLAN [Suspect]
     Active Substance: AMIKACIN
     Indication: UNDIFFERENTIATED NASOPHARYNGEAL CARCINOMA
     Dosage: 2.4 G, QD
     Route: 042
     Dates: start: 20140804, end: 20140809
  6. AMIKACINE MYLAN [Suspect]
     Active Substance: AMIKACIN
     Dosage: UNK
     Dates: start: 20140812
  7. HYDROCORTISON                      /00028601/ [Suspect]
     Active Substance: HYDROCORTISONE
     Indication: PRODUCT USED FOR UNKNOWN INDICATION
     Dosage: 50 MG, QD
     Route: 042
     Dates: start: 20140804, end: 20140812
  8. CISPLATINE TEVA [Suspect]
     Active Substance: CISPLATIN
     Indication: UNDIFFERENTIATED NASOPHARYNGEAL CARCINOMA
     Dosage: 80 MG/M2, QD
     Route: 042
     Dates: start: 20140606, end: 20140725
  9. INSULINE                           /01223401/ [Suspect]
     Active Substance: INSULIN NOS
     Indication: PRODUCT USED FOR UNKNOWN INDICATION
     Dosage: UNK
  10. SOLUPRED                           /00016201/ [Concomitant]
     Active Substance: PREDNISOLONE
     Dosage: UNK

REACTIONS (15)
  - Acute respiratory distress syndrome [Unknown]
  - Bone marrow failure [Unknown]
  - Dyspepsia [Unknown]
  - Pulmonary embolism [Unknown]
  - Fanconi syndrome acquired [Unknown]
  - Mucosal inflammation [Unknown]
  - Device related infection [Unknown]
  - Hypoxia [Unknown]
  - Septic shock [Unknown]
  - Weight decreased [Unknown]
  - Renal tubular disorder [Recovered/Resolved]
  - Staphylococcal sepsis [Unknown]
  - Acquired aminoaciduria [Unknown]
  - Nausea [Unknown]
  - Vomiting [Unknown]

NARRATIVE: CASE EVENT DATE: 2014
